FAERS Safety Report 7924979-6 (Version None)
Quarter: 2011Q4

REPORT INFORMATION
  Report Type: 
  Country: None (occurrence: None)
  Receive Date: 20111118
  Receipt Date: 20110330
  Transmission Date: 20120403
  Serious: No
  Sender: FDA-Public Use
  Company Number: US-AMGEN-USASP2011017239

PATIENT
  Sex: Female

DRUGS (3)
  1. HUMIRA [Concomitant]
  2. ENBREL [Suspect]
     Indication: RHEUMATOID ARTHRITIS
     Dosage: UNK
     Dates: start: 20030423
  3. CIMZIA [Concomitant]

REACTIONS (6)
  - JOINT SWELLING [None]
  - JOINT STIFFNESS [None]
  - THERAPEUTIC RESPONSE DECREASED [None]
  - INJECTION SITE PALLOR [None]
  - INJECTION SITE REACTION [None]
  - LATEX ALLERGY [None]
